FAERS Safety Report 10891411 (Version 1)
Quarter: 2015Q1

REPORT INFORMATION
  Report Type: Spontaneous
  Country: IN (occurrence: IN)
  Receive Date: 20150306
  Receipt Date: 20150306
  Transmission Date: 20150721
  Serious: Yes (Other)
  Sender: FDA-Public Use
  Company Number: IN-ASTRAZENECA-2015SE18875

PATIENT
  Age: 39 Year
  Sex: Male
  Weight: 74 kg

DRUGS (4)
  1. ROPIVACAINE [Suspect]
     Active Substance: ROPIVACAINE
     Dosage: 15 ML OF 0.75%
     Route: 008
  2. AMLODIPINE [Concomitant]
     Active Substance: AMLODIPINE BESYLATE
  3. LIGNOCAINE [Suspect]
     Active Substance: LIDOCAINE HYDROCHLORIDE
     Indication: EPIDURAL TEST DOSE
     Dosage: 3 ML OF 2% LIGNOCAINE CONTAINING 15 G EPINEPHRINE (1:200,000)
     Route: 008
  4. ATENOLOL. [Concomitant]
     Active Substance: ATENOLOL

REACTIONS (4)
  - Hypotension [Recovered/Resolved]
  - Accidental exposure to product [Unknown]
  - Generalised tonic-clonic seizure [Recovered/Resolved]
  - Bradycardia [Recovered/Resolved]
